FAERS Safety Report 4918044-X (Version None)
Quarter: 2006Q1

REPORT INFORMATION
  Report Type: 
  Country: None (occurrence: None)
  Receive Date: 20060215
  Receipt Date: 20060206
  Transmission Date: 20060701
  Serious: Yes (Hospitalization)
  Sender: FDA-Public Use
  Company Number: 2005-08-0862

PATIENT
  Age: 75 Year
  Sex: Female

DRUGS (14)
  1. INTRON A [Suspect]
     Indication: METASTATIC RENAL CELL CARCINOMA
     Dosage: SEE IMAGE
     Route: 058
     Dates: start: 20050411, end: 20050413
  2. INTRON A [Suspect]
     Indication: METASTATIC RENAL CELL CARCINOMA
     Dosage: SEE IMAGE
     Route: 058
     Dates: start: 20050415, end: 20050415
  3. INTRON A [Suspect]
     Indication: METASTATIC RENAL CELL CARCINOMA
     Dosage: SEE IMAGE
     Route: 058
     Dates: start: 20050422, end: 20050603
  4. INTRON A [Suspect]
     Indication: METASTATIC RENAL CELL CARCINOMA
     Dosage: SEE IMAGE
     Route: 058
     Dates: start: 20050411, end: 20050729
  5. INTRON A [Suspect]
     Indication: METASTATIC RENAL CELL CARCINOMA
     Dosage: SEE IMAGE
     Route: 058
     Dates: start: 20050627, end: 20050729
  6. FRUSEMIDE [Concomitant]
  7. TEMAZEPAM [Concomitant]
  8. ACETAMINOPHEN [Concomitant]
  9. LOPRAZOLAM [Concomitant]
  10. THEOPHYLLINE [Concomitant]
  11. LANSOPRAZOLE [Concomitant]
  12. CO-AMILOFRUSE [Concomitant]
  13. SALBUTAMOL SULPHATE [Concomitant]
  14. VITAMIN B COMPLEX CAP [Concomitant]

REACTIONS (5)
  - BLOOD POTASSIUM INCREASED [None]
  - DIARRHOEA [None]
  - LETHARGY [None]
  - MALAISE [None]
  - NAUSEA [None]
